FAERS Safety Report 23945851 (Version 1)
Quarter: 2024Q2

REPORT INFORMATION
  Report Type: Spontaneous
  Country: CN (occurrence: CN)
  Receive Date: 20240606
  Receipt Date: 20240606
  Transmission Date: 20240716
  Serious: Yes (Hospitalization)
  Sender: FDA-Public Use
  Company Number: CN-PFIZER INC-PV202400073598

PATIENT
  Age: 58 Year
  Sex: Female
  Weight: 55.5 kg

DRUGS (2)
  1. EPIRUBICIN HYDROCHLORIDE [Suspect]
     Active Substance: EPIRUBICIN HYDROCHLORIDE
     Indication: Chemotherapy
     Dosage: 130 MG, 1X/DAY
     Route: 041
     Dates: start: 20240531, end: 20240531
  2. SODIUM CHLORIDE [Concomitant]
     Active Substance: SODIUM CHLORIDE
     Indication: Vehicle solution use
     Dosage: 250 ML, 1X/DAY
     Route: 041
     Dates: start: 20240531, end: 20240531

REACTIONS (4)
  - Chest discomfort [Recovering/Resolving]
  - Palpitations [Recovering/Resolving]
  - Sinus bradycardia [Unknown]
  - Supraventricular extrasystoles [Unknown]

NARRATIVE: CASE EVENT DATE: 20240601
